FAERS Safety Report 7366941-0 (Version None)
Quarter: 2011Q1

REPORT INFORMATION
  Report Type: 
  Country: None (occurrence: None)
  Receive Date: 20110317
  Receipt Date: 20110317
  Transmission Date: 20110831
  Serious: No
  Sender: FDA-Public Use
  Company Number: None

PATIENT
  Age: 58 Year
  Sex: Female
  Weight: 74.8435 kg

DRUGS (1)
  1. LEVAQUIN [Suspect]
     Indication: PNEUMONIA
     Dosage: 500 MG ONCE A DAY PO
     Route: 048
     Dates: start: 20110101, end: 20110103

REACTIONS (10)
  - INSOMNIA [None]
  - PARANOIA [None]
  - HEADACHE [None]
  - BRUXISM [None]
  - MUSCLE TIGHTNESS [None]
  - DECREASED APPETITE [None]
  - HALLUCINATION, AUDITORY [None]
  - MUSCULOSKELETAL STIFFNESS [None]
  - ATAXIA [None]
  - TINNITUS [None]
